FAERS Safety Report 7866364-1 (Version None)
Quarter: 2011Q4

REPORT INFORMATION
  Report Type: 
  Country: None (occurrence: None)
  Receive Date: 20111028
  Receipt Date: 20110606
  Transmission Date: 20120403
  Serious: No
  Sender: FDA-Public Use
  Company Number: US-GLAXOSMITHKLINE-A0930380A

PATIENT
  Age: 71 Year
  Sex: Female

DRUGS (14)
  1. ADVAIR DISKUS 100/50 [Suspect]
     Indication: ASTHMA
     Dosage: 1PUFF PER DAY
     Route: 055
  2. DIOVAN [Concomitant]
  3. VITAMIN TAB [Concomitant]
  4. DICYCLOMINE [Concomitant]
  5. ALENDRONATE SODIUM [Concomitant]
  6. ALBUTEROL [Concomitant]
  7. METHOTREXATE [Concomitant]
  8. NIFEDIPINE [Concomitant]
  9. LASIX [Concomitant]
  10. PREDNISONE [Concomitant]
  11. NIASPAN [Concomitant]
  12. DOXAZOSIN MESYLATE [Concomitant]
  13. LISINOPRIL [Concomitant]
  14. TYLENOL W/ CODEINE NO. 4 [Concomitant]

REACTIONS (3)
  - PRODUCT QUALITY ISSUE [None]
  - WHEEZING [None]
  - DRUG INEFFECTIVE [None]
